FAERS Safety Report 9285701 (Version 1)
Quarter: 2013Q2

REPORT INFORMATION
  Report Type: Spontaneous
  Country: US (occurrence: None)
  Receive Date: 20130507
  Receipt Date: 20130507
  Transmission Date: 20140414
  Serious: Yes (Hospitalization)
  Sender: FDA-Public Use
  Company Number: 2013-001366

PATIENT
  Age: 67 Year
  Sex: Female

DRUGS (4)
  1. ASACOL [Suspect]
     Indication: COLITIS ULCERATIVE
     Route: 048
  2. ALEVE [Suspect]
     Dosage: ONE DOSE ONLY
     Dates: start: 2010, end: 2010
  3. BENICAR [Concomitant]
  4. HYDROCHLOROTHIAZIDE [Concomitant]

REACTIONS (1)
  - Atrial fibrillation [None]
